FAERS Safety Report 23955915 (Version 1)
Quarter: 2024Q2

REPORT INFORMATION
  Report Type: Spontaneous
  Country: CA (occurrence: None)
  Receive Date: 20240610
  Receipt Date: 20240610
  Transmission Date: 20240715
  Serious: Yes (Death)
  Sender: FDA-Public Use
  Company Number: CA-ROCHE-3319604

PATIENT
  Age: 78 Year
  Sex: Female

DRUGS (2)
  1. RITUXIMAB [Suspect]
     Active Substance: RITUXIMAB
     Indication: Rheumatoid arthritis
     Route: 042
  2. TYLENOL [Concomitant]
     Active Substance: ACETAMINOPHEN
     Indication: Product used for unknown indication
     Route: 065

REACTIONS (10)
  - Arthralgia [Fatal]
  - Cough [Fatal]
  - Drug ineffective [Fatal]
  - Secretion discharge [Fatal]
  - Sinusitis [Fatal]
  - Balance disorder [Fatal]
  - Fall [Fatal]
  - Fine motor skill dysfunction [Fatal]
  - Respiratory failure [Fatal]
  - COVID-19 [Fatal]
